FAERS Safety Report 5801218-3 (Version None)
Quarter: 2008Q3

REPORT INFORMATION
  Report Type: 
  Country: None (occurrence: None)
  Receive Date: 20080707
  Receipt Date: 20080628
  Transmission Date: 20090109
  Serious: Yes (Hospitalization, Other)
  Sender: FDA-Public Use
  Company Number: US-ELI_LILLY_AND_COMPANY-US200807000461

PATIENT
  Sex: Male

DRUGS (1)
  1. ZYPREXA [Suspect]
     Dosage: UNK, UNK

REACTIONS (3)
  - DIABETES MELLITUS [None]
  - PSYCHOTIC DISORDER [None]
  - WEIGHT INCREASED [None]
